FAERS Safety Report 5016096-2 (Version None)
Quarter: 2006Q2

REPORT INFORMATION
  Report Type: 
  Country: None (occurrence: None)
  Receive Date: 20060414
  Receipt Date: 20060208
  Transmission Date: 20061013
  Serious: No
  Sender: FDA-Public Use
  Company Number: 2006SP000694

PATIENT
  Age: 40 Year
  Sex: Female
  Weight: 63.5036 kg

DRUGS (3)
  1. LUNESTA [Suspect]
     Dosage: 2 MG;ORAL
     Route: 048
     Dates: start: 20060101, end: 20060201
  2. CLARITIN [Concomitant]
  3. ALAVERT [Concomitant]

REACTIONS (3)
  - DYSGEUSIA [None]
  - HYPERHIDROSIS [None]
  - SKIN ODOUR ABNORMAL [None]
